FAERS Safety Report 8789132 (Version 1)
Quarter: 2012Q4

REPORT INFORMATION
  Report Type: Spontaneous
  Country: US (occurrence: None)
  Receive Date: 20120904
  Receipt Date: 20120904
  Transmission Date: 20130627
  Serious: Yes (Life-Threatening, Hospitalization)
  Sender: FDA-Public Use
  Company Number: 001034278A

PATIENT
  Sex: Female

DRUGS (5)
  1. PROACTIV [Suspect]
     Indication: ACNE
     Dosage: dermally
     Dates: start: 20111013
  2. PROACTIV REPAIRING TREATMENT [Suspect]
     Indication: ACNE
     Dosage: dermally
     Dates: start: 20111013
  3. PROACTIV [Suspect]
     Indication: ACNE
     Dates: start: 20111013
  4. PROACTIV DEEP CLEANSING WASH [Suspect]
     Indication: ACNE
     Dates: start: 20111013
  5. PROACTIV [Suspect]
     Indication: ACNE
     Dates: start: 20111013

REACTIONS (5)
  - Swelling face [None]
  - Pruritus [None]
  - Urticaria [None]
  - Feeling hot [None]
  - Reaction to drug excipients [None]
